FAERS Safety Report 9746877 (Version 3)
Quarter: 2014Q1

REPORT INFORMATION
  Report Type: Report from Study
  Country: NL (occurrence: NL)
  Receive Date: 20131211
  Receipt Date: 20140121
  Transmission Date: 20141002
  Serious: Yes (Other)
  Sender: FDA-Public Use
  Company Number: NL-BAXTER-2013BAX047904

PATIENT
  Age: 57 Year
  Sex: Female

DRUGS (4)
  1. GAMMAGARD S/D 10, POEDER VOOR INFUSIEVLOEISTOF [Suspect]
     Indication: SECONDARY IMMUNODEFICIENCY
     Route: 042
     Dates: start: 20131106
  2. GAMMAGARD S/D 10, POEDER VOOR INFUSIEVLOEISTOF [Suspect]
     Route: 042
     Dates: start: 20131127
  3. GAMMAGARD S/D 5, POEDER VOOR INFUSIEVLOEISTOF [Suspect]
     Indication: SECONDARY IMMUNODEFICIENCY
     Route: 042
     Dates: start: 20131106
  4. GAMMAGARD S/D 5, POEDER VOOR INFUSIEVLOEISTOF [Suspect]
     Route: 042
     Dates: start: 20131127

REACTIONS (1)
  - Urinary retention [Recovering/Resolving]
